FAERS Safety Report 9469935 (Version 2)
Quarter: 2013Q3

REPORT INFORMATION
  Report Type: Report from Study
  Country: US (occurrence: US)
  Receive Date: 20130822
  Receipt Date: 20130822
  Transmission Date: 20140515
  Serious: Yes (Hospitalization)
  Sender: FDA-Public Use
  Company Number: US-ROCHE-1233189

PATIENT
  Age: 66 Year
  Sex: Male
  Weight: 74.5 kg

DRUGS (16)
  1. BEVACIZUMAB [Suspect]
     Indication: PROSTATE CANCER
     Route: 042
     Dates: start: 20130520
  2. DOCETAXEL [Suspect]
     Indication: PROSTATE CANCER
     Route: 042
     Dates: start: 20130520
  3. EVEROLIMUS [Suspect]
     Indication: PROSTATE CANCER
     Route: 048
     Dates: start: 20130115, end: 20130604
  4. LUPRON [Concomitant]
  5. ZOMETA [Concomitant]
  6. SIMVASTATIN [Concomitant]
  7. ACETAMINOPHEN [Concomitant]
  8. ASA [Concomitant]
  9. SYMBICORT [Concomitant]
  10. DECADRON [Concomitant]
  11. ZOFRAN [Concomitant]
  12. COMPAZINE [Concomitant]
  13. MMX (MILK OF MAGNESIA, MYCELEX, XYLOCAINE) [Concomitant]
  14. ARANESP [Concomitant]
  15. IMODIUM [Concomitant]
  16. CALCIUM CARBONATE [Concomitant]

REACTIONS (2)
  - Haemorrhage [Unknown]
  - Pneumonia [Not Recovered/Not Resolved]
